FAERS Safety Report 5096720-9 (Version None)
Quarter: 2006Q3

REPORT INFORMATION
  Report Type: 
  Country: None (occurrence: None)
  Receive Date: 20060831
  Receipt Date: 20060823
  Transmission Date: 20061208
  Serious: Yes (Life-Threatening, Other)
  Sender: FDA-Public Use
  Company Number: 2006JP002888

PATIENT
  Sex: Female

DRUGS (5)
  1. PROGRAF [Suspect]
     Indication: BONE MARROW TRANSPLANT
     Dosage: SEE IMAGE
     Route: 041
     Dates: start: 20060725, end: 20060728
  2. PROGRAF [Suspect]
     Indication: BONE MARROW TRANSPLANT
     Dosage: SEE IMAGE
     Route: 041
     Dates: start: 20060729, end: 20060819
  3. PROGRAF [Suspect]
     Indication: BONE MARROW TRANSPLANT
     Dosage: SEE IMAGE
     Route: 041
     Dates: start: 20060820, end: 20060821
  4. PROGRAF [Suspect]
     Indication: BONE MARROW TRANSPLANT
     Dosage: SEE IMAGE
     Route: 041
     Dates: start: 20060822
  5. FUNGUARD (MICAFUNGIN) INJECTION [Suspect]
     Dosage: 50 MG, IV DRIP
     Route: 041
     Dates: start: 20060719, end: 20060821

REACTIONS (6)
  - ALLOGENIC BONE MARROW TRANSPLANTATION THERAPY [None]
  - CONVULSION [None]
  - DEPRESSED LEVEL OF CONSCIOUSNESS [None]
  - HYPERGLYCAEMIA [None]
  - IMMUNOSUPPRESSANT DRUG LEVEL INCREASED [None]
  - RESPIRATORY DISORDER [None]
